FAERS Safety Report 11582024 (Version 1)
Quarter: 2015Q3

REPORT INFORMATION
  Report Type: Spontaneous
  Country: US (occurrence: None)
  Receive Date: 20150930
  Receipt Date: 20150930
  Transmission Date: 20151125
  Serious: Yes (Other)
  Sender: FDA-Public Use
  Company Number: None

PATIENT
  Sex: Female
  Weight: 27.3 kg

DRUGS (2)
  1. KEPPRA (GENERIC) 500MG [Suspect]
     Active Substance: LEVETIRACETAM
     Indication: EPILEPSY
     Dosage: .1  QAM
     Route: 048
     Dates: start: 200612
  2. GENERIC KEPPRA 500MG [Suspect]
     Active Substance: LEVETIRACETAM
     Dosage: 1.5 QPM?
     Route: 048

REACTIONS (2)
  - Product substitution issue [None]
  - Seizure [None]

NARRATIVE: CASE EVENT DATE: 2006
